FAERS Safety Report 8131343-6 (Version None)
Quarter: 2012Q1

REPORT INFORMATION
  Report Type: 
  Country: None (occurrence: None)
  Receive Date: 20120213
  Receipt Date: 20120206
  Transmission Date: 20120608
  Serious: Yes (Other)
  Sender: FDA-Public Use
  Company Number: CA-BRISTOL-MYERS SQUIBB COMPANY-16317448

PATIENT
  Age: 28 Year
  Sex: Female

DRUGS (2)
  1. ABILIFY [Suspect]
     Indication: BIPOLAR DISORDER
     Dosage: STARTED WITH 5MG AND INCREASED DOSE:15MG
     Route: 048
     Dates: end: 20110101
  2. RISPERDAL [Concomitant]
     Dosage: DRUG STOPPED.

REACTIONS (2)
  - PREGNANCY [None]
  - ABORTION SPONTANEOUS [None]
